FAERS Safety Report 12154938 (Version 1)
Quarter: 2016Q1

REPORT INFORMATION
  Report Type: Spontaneous
  Country: US (occurrence: None)
  Receive Date: 20160304
  Receipt Date: 20160304
  Transmission Date: 20160526
  Serious: No
  Sender: FDA-Public Use
  Company Number: None

PATIENT
  Age: 44 Year
  Sex: Female

DRUGS (26)
  1. FLUTICASONWE [Concomitant]
  2. LISINOPRIL. [Concomitant]
     Active Substance: LISINOPRIL
  3. AMLODIPINE [Concomitant]
     Active Substance: AMLODIPINE BESYLATE
  4. AMBIEN [Concomitant]
     Active Substance: ZOLPIDEM TARTRATE
  5. MAXALT [Concomitant]
     Active Substance: RIZATRIPTAN BENZOATE
  6. CYMBALTA [Concomitant]
     Active Substance: DULOXETINE HYDROCHLORIDE
  7. XANAX [Concomitant]
     Active Substance: ALPRAZOLAM
  8. REBIF [Suspect]
     Active Substance: INTERFERON BETA-1A
     Indication: MULTIPLE SCLEROSIS
     Route: 058
     Dates: start: 20091124
  9. VITAMIN D3 [Concomitant]
     Active Substance: CHOLECALCIFEROL
  10. AZELASTINE [Concomitant]
     Active Substance: AZELASTINE
  11. MUCINEX [Concomitant]
     Active Substance: GUAIFENESIN
  12. MULTI VITAMIN [Concomitant]
     Active Substance: VITAMINS
  13. ALBUTEROL. [Concomitant]
     Active Substance: ALBUTEROL
  14. DIAZEPAM. [Concomitant]
     Active Substance: DIAZEPAM
  15. VITAMIN B12 [Concomitant]
     Active Substance: CYANOCOBALAMIN
  16. ZOLPIDEM [Concomitant]
     Active Substance: ZOLPIDEM\ZOLPIDEM TARTRATE
  17. OMEGA 3 [Concomitant]
     Active Substance: OMEGA-3 FATTY ACIDS
  18. ALI [Concomitant]
  19. SYNTHROID [Concomitant]
     Active Substance: LEVOTHYROXINE SODIUM
  20. GABAPENTIN. [Concomitant]
     Active Substance: GABAPENTIN
  21. TURMERIC [Concomitant]
     Active Substance: TURMERIC
  22. VITAMIN D [Concomitant]
     Active Substance: CHOLECALCIFEROL
  23. LORAZEPAM. [Concomitant]
     Active Substance: LORAZEPAM
  24. HYDROCHLOROT [Concomitant]
     Active Substance: HYDROCHLOROTHIAZIDE
  25. PROAIR HFA [Concomitant]
     Active Substance: ALBUTEROL SULFATE
  26. MODAFINIL. [Concomitant]
     Active Substance: MODAFINIL

REACTIONS (3)
  - Coordination abnormal [None]
  - Fall [None]
  - Clumsiness [None]

NARRATIVE: CASE EVENT DATE: 20160128
